FAERS Safety Report 8767287 (Version 2)
Quarter: 2012Q4

REPORT INFORMATION
  Report Type: Report from Study
  Country: DE (occurrence: DE)
  Receive Date: 20120904
  Receipt Date: 20120919
  Transmission Date: 20130627
  Serious: Yes (Hospitalization)
  Sender: FDA-Public Use
  Company Number: PHHO2012DE012754

PATIENT
  Age: 48 Year
  Sex: Male
  Weight: 75 kg

DRUGS (4)
  1. AFINITOR [Suspect]
     Indication: GERM CELL CANCER
     Dosage: 10 mg, QD
     Dates: start: 20120728, end: 20120829
  2. NOVALGIN [Concomitant]
     Indication: PAIN
     Dosage: 90 mg, QD
     Dates: start: 20120719
  3. NOVALGIN [Concomitant]
     Indication: PYREXIA
  4. PALLADON [Concomitant]
     Indication: PAIN
     Dosage: 4 mg - 0 - 2 mg
     Dates: start: 20120719

REACTIONS (6)
  - Abdominal distension [Unknown]
  - General physical health deterioration [Unknown]
  - Dyspnoea [Unknown]
  - Pain [Unknown]
  - Pneumonia [Unknown]
  - Pyrexia [Unknown]
